FAERS Safety Report 9261524 (Version 1)
Quarter: 2013Q2

REPORT INFORMATION
  Report Type: Spontaneous
  Country: AE (occurrence: AE)
  Receive Date: 20130429
  Receipt Date: 20130429
  Transmission Date: 20140414
  Serious: Yes (Hospitalization)
  Sender: FDA-Public Use
  Company Number: PHHY2013AE039063

PATIENT
  Age: 11 Year
  Sex: Male

DRUGS (4)
  1. VALPROIC ACID [Suspect]
     Indication: EPILEPSY
     Dosage: 30 MG/KG/DAY
  2. CLONAZEPAM [Concomitant]
     Indication: EPILEPSY
  3. LAMOTRIGINE [Concomitant]
     Indication: EPILEPSY
  4. TOPIRAMATE [Concomitant]
     Indication: EPILEPSY

REACTIONS (12)
  - Pleural effusion [Unknown]
  - Hypertonia [Unknown]
  - Musculoskeletal stiffness [Unknown]
  - Bruxism [Unknown]
  - Intestinal dilatation [Unknown]
  - Abdominal distension [Unknown]
  - Restlessness [Unknown]
  - Agitation [Unknown]
  - Malaise [Unknown]
  - Pancreatitis acute [Recovered/Resolved]
  - Lethargy [Unknown]
  - Food aversion [Unknown]
